FAERS Safety Report 24675169 (Version 3)
Quarter: 2024Q4

REPORT INFORMATION
  Report Type: Report from Study
  Country: JP (occurrence: JP)
  Receive Date: 20241128
  Receipt Date: 20241225
  Transmission Date: 20250114
  Serious: Yes (Other)
  Sender: JOHNSON AND JOHNSON
  Company Number: JP-JNJFOC-20241163825

PATIENT

DRUGS (1)
  1. SIMPONI [Suspect]
     Active Substance: GOLIMUMAB
     Indication: Rheumatoid arthritis
     Dosage: DOSE UNKNOWN
     Route: 058

REACTIONS (9)
  - Tuberculosis [Unknown]
  - Neoplasm malignant [Unknown]
  - Infection [Unknown]
  - Neoplasm [Unknown]
  - Cardiovascular disorder [Unknown]
  - Herpes zoster [Unknown]
  - Adverse event [Unknown]
  - Therapeutic product effect incomplete [Unknown]
  - Off label use [Unknown]
